FAERS Safety Report 4880946-0 (Version None)
Quarter: 2005Q4

REPORT INFORMATION
  Report Type: 
  Country: None (occurrence: None)
  Receive Date: 20051223
  Receipt Date: 20051031
  Transmission Date: 20060501
  Serious: No
  Sender: FDA-Public Use
  Company Number: 05P-163-0316062-00

PATIENT
  Age: 60 Year
  Sex: Female
  Weight: 90.7194 kg

DRUGS (5)
  1. HUMIRA [Suspect]
     Indication: RHEUMATOID ARTHRITIS
     Dosage: 40 MG, 1 IN 1 WK, SUBCUTANEOUS
     Route: 058
  2. LISINOPRIL [Concomitant]
  3. CELECOXIB [Concomitant]
  4. HYDROCHLOROTHIAZIDE [Concomitant]
  5. VICODIN [Concomitant]

REACTIONS (3)
  - ALOPECIA [None]
  - PIGMENTATION DISORDER [None]
  - SKIN EXFOLIATION [None]
